FAERS Safety Report 5425239-8 (Version None)
Quarter: 2007Q3

REPORT INFORMATION
  Report Type: 
  Country: None (occurrence: None)
  Receive Date: 20070824
  Receipt Date: 20070810
  Transmission Date: 20080115
  Serious: Yes (Other)
  Sender: FDA-Public Use
  Company Number: US-PFIZER INC-2006064430

PATIENT
  Sex: Female

DRUGS (3)
  1. DETROL LA [Suspect]
     Indication: ILL-DEFINED DISORDER
     Dosage: TEXT:UNKNOWN-FREQ:UNKNOWN
     Route: 065
  2. OXYBUTYNIN CHLORIDE [Suspect]
     Indication: ILL-DEFINED DISORDER
     Dosage: TEXT:UNKNOWN-FREQ:UNKNOWN
     Route: 062
  3. FOSAMAX [Concomitant]
     Route: 065

REACTIONS (5)
  - BODY HEIGHT DECREASED [None]
  - DRUG INEFFECTIVE [None]
  - DRY MOUTH [None]
  - HYPERTENSION [None]
  - WEIGHT DECREASED [None]
